FAERS Safety Report 21046471 (Version 1)
Quarter: 2022Q3

REPORT INFORMATION
  Report Type: Spontaneous
  Country: TW (occurrence: TW)
  Receive Date: 20220706
  Receipt Date: 20220706
  Transmission Date: 20221026
  Serious: Yes (Disabling)
  Sender: FDA-Public Use
  Company Number: TW-GALDERMA-TW2022008833

PATIENT

DRUGS (1)
  1. CLOBEX [Suspect]
     Active Substance: CLOBETASOL PROPIONATE
     Indication: Folliculitis
     Dosage: 1 DOSAGE FORM
     Route: 061

REACTIONS (2)
  - Central serous chorioretinopathy [Not Recovered/Not Resolved]
  - Intentional product use issue [Recovered/Resolved]
